FAERS Safety Report 5902402-0 (Version None)
Quarter: 2008Q3

REPORT INFORMATION
  Report Type: 
  Country: None (occurrence: None)
  Receive Date: 20080929
  Receipt Date: 20080815
  Transmission Date: 20090109
  Serious: Yes (Other)
  Sender: FDA-Public Use
  Company Number: TR-ASTRAZENECA-2008SE03823

PATIENT
  Sex: Male
  Weight: 72 kg

DRUGS (1)
  1. NEXIUM [Suspect]
     Dosage: 1*1
     Route: 048

REACTIONS (5)
  - ANGINA PECTORIS [None]
  - ASTHENIA [None]
  - HYPERHIDROSIS [None]
  - HYPOTENSION [None]
  - TACHYCARDIA [None]
